FAERS Safety Report 14356094 (Version 1)
Quarter: 2018Q1

REPORT INFORMATION
  Report Type: Spontaneous
  Country: GB (occurrence: NL)
  Receive Date: 20180105
  Receipt Date: 20180105
  Transmission Date: 20180509
  Serious: Yes (Hospitalization)
  Sender: FDA-Public Use
  Company Number: NL-FRESENIUS KABI-FK201800105

PATIENT
  Age: 87 Year
  Sex: Female
  Weight: 63 kg

DRUGS (7)
  1. OXYNORM [Concomitant]
     Active Substance: OXYCODONE HYDROCHLORIDE
  2. CEFUROXIME (MANUFACTURER UNKNOWN) [Suspect]
     Active Substance: CEFUROXIME
     Indication: UROSEPSIS
     Route: 065
     Dates: start: 20170729, end: 20170804
  3. HYPROMELLOSE [Concomitant]
     Active Substance: HYPROMELLOSES
  4. HYDROXOCOBALAMINE [Concomitant]
     Active Substance: HYDROXOCOBALAMIN
  5. NADROPARINE [Concomitant]
     Active Substance: NADROPARIN
  6. OXYCONTIN [Concomitant]
     Active Substance: OXYCODONE HYDROCHLORIDE
  7. TIMOLOL. [Concomitant]
     Active Substance: TIMOLOL
     Dates: start: 20161012

REACTIONS (2)
  - Acute kidney injury [Recovering/Resolving]
  - Tubulointerstitial nephritis [Recovering/Resolving]

NARRATIVE: CASE EVENT DATE: 20170803
